FAERS Safety Report 18057412 (Version 1)
Quarter: 2020Q3

REPORT INFORMATION
  Report Type: Report from Study
  Country: None (occurrence: US)
  Receive Date: 20200723
  Receipt Date: 20200723
  Transmission Date: 20201103
  Serious: Yes (Life-Threatening, Hospitalization, Other)
  Sender: FDA-Public Use
  Company Number: US-ABBVIE-20K-163-3491220-00

PATIENT
  Age: 55 Year
  Sex: Female

DRUGS (3)
  1. PREDNISONE. [Concomitant]
     Active Substance: PREDNISONE
     Indication: RHEUMATOID ARTHRITIS
  2. HUMIRA [Suspect]
     Active Substance: ADALIMUMAB
     Indication: RHEUMATOID ARTHRITIS
     Route: 058
     Dates: start: 2019
  3. IBUPROFEN. [Concomitant]
     Active Substance: IBUPROFEN
     Indication: RHEUMATOID ARTHRITIS

REACTIONS (15)
  - Fatigue [Recovering/Resolving]
  - Impaired work ability [Recovering/Resolving]
  - Arthralgia [Not Recovered/Not Resolved]
  - Anaphylactic reaction [Recovering/Resolving]
  - Nervous system disorder [Recovering/Resolving]
  - Hypoaesthesia [Recovered/Resolved]
  - Pain in extremity [Not Recovered/Not Resolved]
  - Anal incontinence [Recovered/Resolved]
  - Foot deformity [Not Recovered/Not Resolved]
  - Irritability [Recovering/Resolving]
  - Arthropod bite [Recovering/Resolving]
  - Feeling abnormal [Recovering/Resolving]
  - Fine motor skill dysfunction [Unknown]
  - Therapeutic response shortened [Not Recovered/Not Resolved]
  - Disorientation [Recovering/Resolving]

NARRATIVE: CASE EVENT DATE: 2019
